FAERS Safety Report 26061962 (Version 1)
Quarter: 2025Q4

REPORT INFORMATION
  Report Type: Spontaneous
  Country: US (occurrence: US)
  Receive Date: 20251119
  Receipt Date: 20251119
  Transmission Date: 20260117
  Serious: No
  Sender: ALKEM
  Company Number: None

PATIENT
  Age: 60 Year
  Sex: Female

DRUGS (10)
  1. CHOLESTYRAMINE [Suspect]
     Active Substance: CHOLESTYRAMINE
     Indication: Chronic inflammatory response syndrome
     Dosage: UNK
     Route: 065
  2. ITRACONAZOLE [Suspect]
     Active Substance: ITRACONAZOLE
     Indication: Chronic inflammatory response syndrome
     Dosage: UNK
     Route: 065
  3. FLUCONAZOLE [Suspect]
     Active Substance: FLUCONAZOLE
     Indication: Chronic inflammatory response syndrome
     Dosage: UNK
     Route: 065
  4. ACTIVATED CHARCOAL [Suspect]
     Active Substance: ACTIVATED CHARCOAL
     Indication: Chronic inflammatory response syndrome
     Dosage: UNK
     Route: 065
  5. DIETARY SUPPLEMENT [Suspect]
     Active Substance: DIETARY SUPPLEMENT
     Indication: Chronic inflammatory response syndrome
     Dosage: UNK
     Route: 065
  6. MAGNESIUM [Suspect]
     Active Substance: MAGNESIUM
     Indication: Chronic inflammatory response syndrome
     Dosage: UNK
     Route: 065
  7. NYSTATIN [Suspect]
     Active Substance: NYSTATIN
     Indication: Chronic inflammatory response syndrome
     Dosage: UNK
     Route: 065
  8. SACCHAROMYCES [Suspect]
     Active Substance: SACCHAROMYCES CEREVISIAE
     Indication: Chronic inflammatory response syndrome
     Dosage: UNK
     Route: 065
  9. VITAMIN B [Suspect]
     Active Substance: VITAMIN B
     Indication: Chronic inflammatory response syndrome
     Dosage: UNK
     Route: 065
  10. ZINC [Suspect]
     Active Substance: ZINC
     Indication: Chronic inflammatory response syndrome
     Dosage: UNK
     Route: 065

REACTIONS (2)
  - Hypersensitivity [Unknown]
  - Drug intolerance [Unknown]
